FAERS Safety Report 17238797 (Version 1)
Quarter: 2020Q1

REPORT INFORMATION
  Report Type: Spontaneous
  Country: US (occurrence: US)
  Receive Date: 20200105
  Receipt Date: 20200105
  Transmission Date: 20200409
  Serious: Yes (Life-Threatening)
  Sender: FDA-Public Use
  Company Number: None

PATIENT
  Age: 39 Year
  Sex: Female
  Weight: 85.5 kg

DRUGS (3)
  1. PRENATAL AND IRON [Concomitant]
  2. METAMUCIL [Concomitant]
     Active Substance: PLANTAGO SEED
  3. CYTOTEC [Suspect]
     Active Substance: MISOPROSTOL
     Indication: LABOUR INDUCTION
     Dosage: ?          OTHER FREQUENCY:EVERY 3HRS;?
     Route: 067
     Dates: start: 20190818, end: 20190819

REACTIONS (5)
  - Maternal drugs affecting foetus [None]
  - Maternal exposure timing unspecified [None]
  - Haemorrhage [None]
  - Disseminated intravascular coagulation [None]
  - Hysterectomy [None]

NARRATIVE: CASE EVENT DATE: 20190819
